FAERS Safety Report 12654656 (Version 1)
Quarter: 2016Q3

REPORT INFORMATION
  Report Type: Spontaneous
  Country: IE (occurrence: IE)
  Receive Date: 20160816
  Receipt Date: 20160816
  Transmission Date: 20161109
  Serious: Yes (Disabling)
  Sender: FDA-Public Use
  Company Number: IE-SA-2016SA146225

PATIENT
  Age: 72 Year
  Sex: Male

DRUGS (6)
  1. CRESTOR [Concomitant]
     Active Substance: ROSUVASTATIN CALCIUM
     Indication: STENT PLACEMENT
  2. CARDICOR [Concomitant]
     Active Substance: BISOPROLOL
     Indication: MYOCARDIAL INFARCTION
  3. CARDICOR [Concomitant]
     Active Substance: BISOPROLOL
     Indication: STENT PLACEMENT
  4. PLAVIX [Suspect]
     Active Substance: CLOPIDOGREL BISULFATE
     Indication: STENT PLACEMENT
     Route: 065
  5. PLAVIX [Suspect]
     Active Substance: CLOPIDOGREL BISULFATE
     Indication: MYOCARDIAL INFARCTION
     Route: 065
  6. CRESTOR [Concomitant]
     Active Substance: ROSUVASTATIN CALCIUM
     Indication: MYOCARDIAL INFARCTION

REACTIONS (6)
  - Malaise [Unknown]
  - Pain [Unknown]
  - Prostatic specific antigen increased [Unknown]
  - Type 2 diabetes mellitus [Unknown]
  - Unevaluable event [Unknown]
  - Hypertension [Unknown]
